FAERS Safety Report 10463388 (Version 1)
Quarter: 2014Q3

REPORT INFORMATION
  Report Type: Spontaneous
  Country: US (occurrence: None)
  Receive Date: 20140918
  Receipt Date: 20140918
  Transmission Date: 20150326
  Serious: Yes (Other)
  Sender: FDA-Public Use
  Company Number: None

PATIENT
  Age: 61 Year
  Sex: Male
  Weight: 81.65 kg

DRUGS (10)
  1. LISINOPRIL. [Concomitant]
     Active Substance: LISINOPRIL
  2. PLENDIL [Concomitant]
     Active Substance: FELODIPINE
  3. SIMVASTIN [Concomitant]
     Active Substance: SIMVASTATIN
  4. DIAZEPAM. [Concomitant]
     Active Substance: DIAZEPAM
  5. FLUTICASONE PROPIONATE NASAL SPRAY [Concomitant]
     Active Substance: FLUTICASONE PROPIONATE
  6. ASPIRIN. [Concomitant]
     Active Substance: ASPIRIN
  7. COLGATE TOTAL ADVANCED CLEAN [Suspect]
     Active Substance: SODIUM FLUORIDE\TRICLOSAN
     Indication: DENTAL CARE
     Dosage: ACTIVE INGREDIENT 0.15% TRICLOSAN ?TOOTHPASTE?2X DAILY?MOUTH BRUSHING TEETH??THERAPY?1997 IR 1998?8/2014??17 YRS OF USE ?THIS YEAR *TOLD TO DISMED)
     Route: 048
     Dates: start: 1997, end: 201408
  8. VIT. D3 [Concomitant]
  9. TRAMADOL HC [Concomitant]
  10. VIT. D. [Concomitant]

REACTIONS (1)
  - Unevaluable event [None]

NARRATIVE: CASE EVENT DATE: 1997
